FAERS Safety Report 4279296-5 (Version None)
Quarter: 2004Q1

REPORT INFORMATION
  Report Type: 
  Country: None (occurrence: None)
  Receive Date: 20040126
  Receipt Date: 20040126
  Transmission Date: 20041129
  Serious: Yes (Hospitalization)
  Sender: FDA-Public Use
  Company Number: None

PATIENT
  Age: 58 Year
  Sex: Male
  Weight: 85.9 kg

DRUGS (6)
  1. CELEBREX [Suspect]
     Dosage: 400 MG ORAL BID
     Route: 048
     Dates: start: 20030722, end: 20031231
  2. COMBIVENT [Concomitant]
  3. FLUNISOLIDE [Concomitant]
  4. RABEPRAZOLE SODIUM [Concomitant]
  5. METOPROLOL [Concomitant]
  6. PREDNISONE [Concomitant]

REACTIONS (6)
  - EMPYEMA [None]
  - IATROGENIC INJURY [None]
  - OPEN WOUND [None]
  - PLEURAL DISORDER [None]
  - POST PROCEDURAL COMPLICATION [None]
  - POST PROCEDURAL HAEMORRHAGE [None]
